FAERS Safety Report 17273886 (Version 1)
Quarter: 2020Q1

REPORT INFORMATION
  Report Type: Spontaneous
  Country: FR (occurrence: FR)
  Receive Date: 20200115
  Receipt Date: 20200115
  Transmission Date: 20200409
  Serious: Yes (Other)
  Sender: FDA-Public Use
  Company Number: FR-MYLANLABS-2020M1004086

PATIENT
  Age: 14 Year
  Sex: Female
  Weight: 28 kg

DRUGS (6)
  1. TAZOBACTAM SODIUM [Concomitant]
     Active Substance: TAZOBACTAM SODIUM
     Dosage: UNK
  2. METHOTREXATE MYLAN [Suspect]
     Active Substance: METHOTREXATE SODIUM
     Indication: ACUTE LYMPHOCYTIC LEUKAEMIA
     Dosage: 12 MILLIGRAM, CYCLE
     Route: 037
     Dates: start: 20190823
  3. ERWINASE                           /07841701/ [Concomitant]
     Active Substance: ASPARAGINASE ERWINIA CHRYSANTHEMI
     Dosage: UNK
  4. BACTRIM [Concomitant]
     Active Substance: SULFAMETHOXAZOLE\TRIMETHOPRIM
     Dosage: UNK
  5. VINCRISTINE SULFATE. [Concomitant]
     Active Substance: VINCRISTINE SULFATE
     Dosage: UNK
  6. PIPERACILLINE                      /00502401/ [Concomitant]
     Active Substance: PIPERACILLIN
     Dosage: UNK

REACTIONS (2)
  - Rash [Recovering/Resolving]
  - Mucosal erosion [Recovering/Resolving]

NARRATIVE: CASE EVENT DATE: 20190905
